FAERS Safety Report 13825229 (Version 1)
Quarter: 2017Q3

REPORT INFORMATION
  Report Type: Spontaneous
  Country: US (occurrence: US)
  Receive Date: 20170801
  Receipt Date: 20170801
  Transmission Date: 20171127
  Serious: Yes (Other)
  Sender: FDA-Public Use
  Company Number: None

PATIENT
  Age: 62 Year
  Sex: Female

DRUGS (1)
  1. POMALYST [Suspect]
     Active Substance: POMALIDOMIDE
     Indication: PLASMA CELL MYELOMA
     Dosage: DATES OF USE - 2 CYCLES?FREQUENCY - DAILY X21D/28D
     Route: 048

REACTIONS (8)
  - Feeling abnormal [None]
  - Paraesthesia [None]
  - Gastrooesophageal reflux disease [None]
  - Nausea [None]
  - Dizziness [None]
  - Sleep disorder [None]
  - Insomnia [None]
  - Balance disorder [None]

NARRATIVE: CASE EVENT DATE: 20150323
